FAERS Safety Report 12454573 (Version 1)
Quarter: 2016Q2

REPORT INFORMATION
  Report Type: Spontaneous
  Country: US (occurrence: None)
  Receive Date: 20160609
  Receipt Date: 20160609
  Transmission Date: 20160815
  Serious: Yes (Hospitalization)
  Sender: FDA-Public Use
  Company Number: None

PATIENT
  Age: 47 Year
  Sex: Female
  Weight: 51.71 kg

DRUGS (1)
  1. CIPRO [Suspect]
     Active Substance: CIPROFLOXACIN HYDROCHLORIDE
     Indication: URINARY TRACT INFECTION
     Route: 048

REACTIONS (9)
  - Drug hypersensitivity [None]
  - Impaired work ability [None]
  - Pain in extremity [None]
  - Pain [None]
  - Blood pressure immeasurable [None]
  - Loss of consciousness [None]
  - Feeding disorder [None]
  - Insomnia [None]
  - Hypoaesthesia [None]

NARRATIVE: CASE EVENT DATE: 20150803
